FAERS Safety Report 24605354 (Version 1)
Quarter: 2024Q4

REPORT INFORMATION
  Report Type: Spontaneous
  Country: US (occurrence: US)
  Receive Date: 20241111
  Receipt Date: 20241111
  Transmission Date: 20250115
  Serious: Yes (Other)
  Sender: SANOFI AVENTIS
  Company Number: US-SA-2024SA324763

PATIENT
  Age: 63 Year
  Sex: Male

DRUGS (1)
  1. DUPIXENT [Suspect]
     Active Substance: DUPILUMAB
     Indication: Asthma
     Dosage: 300 MG, QOW
     Route: 058
     Dates: start: 20240802, end: 2024

REACTIONS (4)
  - Anaphylactic reaction [Unknown]
  - Pharyngeal paraesthesia [Unknown]
  - Swollen tongue [Unknown]
  - Palpitations [Unknown]

NARRATIVE: CASE EVENT DATE: 20241007
